FAERS Safety Report 21990832 (Version 1)
Quarter: 2023Q1

REPORT INFORMATION
  Report Type: Spontaneous
  Country: US (occurrence: None)
  Receive Date: 20230213
  Receipt Date: 20230213
  Transmission Date: 20230417
  Serious: Yes (unspecified)
  Sender: FDA-Public Use
  Company Number: None

PATIENT
  Age: 39 Year
  Sex: Male

DRUGS (4)
  1. METRONIDAZOLE [Suspect]
     Active Substance: METRONIDAZOLE
     Indication: Helicobacter test positive
     Dosage: FREQUENCY : 4 TIMES A DAY;?
     Route: 048
     Dates: start: 20230124, end: 20230129
  2. OMEPRAZOLE [Concomitant]
     Active Substance: OMEPRAZOLE
     Dates: start: 20230124, end: 20230129
  3. BISMUTH SUBSALICYLATE [Concomitant]
     Active Substance: BISMUTH SUBSALICYLATE
     Dates: start: 20230124, end: 20230129
  4. doxyxycline [Concomitant]
     Dates: start: 20230124, end: 20230129

REACTIONS (4)
  - Neuralgia [None]
  - Pruritus [None]
  - Blepharospasm [None]
  - Therapy cessation [None]

NARRATIVE: CASE EVENT DATE: 20230124
